FAERS Safety Report 7064841-7 (Version None)
Quarter: 2010Q4

REPORT INFORMATION
  Report Type: 
  Country: None (occurrence: None)
  Receive Date: 20101027
  Receipt Date: 19881216
  Transmission Date: 20110411
  Serious: Yes (Death, Life-Threatening)
  Sender: FDA-Public Use
  Company Number: US-ROCHE-880201464001

PATIENT
  Age: 76 Year
  Sex: Male
  Weight: 55.3 kg

DRUGS (3)
  1. VERSED [Suspect]
     Indication: RESTLESSNESS
     Route: 042
     Dates: start: 19881206, end: 19881206
  2. DEMEROL [Concomitant]
     Route: 030
     Dates: start: 19881206, end: 19881206
  3. AMINOPHYLLINE [Concomitant]
     Route: 065
     Dates: start: 19881206, end: 19881206

REACTIONS (3)
  - CARDIAC ARREST [None]
  - RESPIRATORY ARREST [None]
  - SEDATION [None]
